FAERS Safety Report 23063276 (Version 2)
Quarter: 2023Q4

REPORT INFORMATION
  Report Type: Report from Study
  Country: KR (occurrence: KR)
  Receive Date: 20231013
  Receipt Date: 20231110
  Transmission Date: 20240110
  Serious: Yes (Other)
  Sender: FDA-Public Use
  Company Number: KR-002147023-NVSC2023KR180348

PATIENT
  Age: 26 Year
  Sex: Female
  Weight: 93 kg

DRUGS (7)
  1. ARCAPTA NEOHALER [Suspect]
     Active Substance: INDACATEROL MALEATE
     Indication: Asthma
     Dosage: 150/160 UG, QD
     Route: 065
     Dates: start: 20230116, end: 20230223
  2. ARCAPTA NEOHALER [Suspect]
     Active Substance: INDACATEROL MALEATE
     Dosage: 150/80 UG, QD
     Dates: start: 20230223, end: 20230502
  3. ARCAPTA NEOHALER [Suspect]
     Active Substance: INDACATEROL MALEATE
     Dosage: 150/80 UG, QD
     Dates: start: 20230510
  4. LEVODROPROPIZINE [Concomitant]
     Active Substance: LEVODROPROPIZINE
     Indication: Asthma
     Dosage: 1 DOSAGE FORM, TID
     Route: 048
     Dates: start: 20221121, end: 20230222
  5. RINOEBASTEL [Concomitant]
     Indication: Rhinitis allergic
     Dosage: 1 DOSAGE FORM, QD
     Route: 048
     Dates: start: 20221220, end: 20230130
  6. ACETYLCYSTEINE [Concomitant]
     Active Substance: ACETYLCYSTEINE
     Indication: Cough
     Dosage: 1 DOSAGE FORM, TID
     Route: 048
     Dates: start: 20221121, end: 20230222
  7. FLUTICASONE FUROATE [Concomitant]
     Active Substance: FLUTICASONE FUROATE
     Indication: Rhinitis allergic
     Dosage: 1 DOSAGE FORM, QD (PUFF)
     Route: 045
     Dates: start: 20221220

REACTIONS (1)
  - Craniofacial fracture [Recovered/Resolved]

NARRATIVE: CASE EVENT DATE: 20230503
